FAERS Safety Report 6562513-6 (Version None)
Quarter: 2010Q1

REPORT INFORMATION
  Report Type: 
  Country: None (occurrence: None)
  Receive Date: 20100130
  Receipt Date: 20091106
  Transmission Date: 20100710
  Serious: No
  Sender: FDA-Public Use
  Company Number: US-ABBOTT-09P-163-0607830-00

PATIENT
  Sex: Female
  Weight: 104.42 kg

DRUGS (15)
  1. HUMIRA [Suspect]
     Indication: PSORIASIS
     Route: 058
     Dates: start: 20060101
  2. HUMIRA [Suspect]
     Indication: PSORIATIC ARTHROPATHY
  3. METOPROLOL [Suspect]
     Indication: DRUG USE FOR UNKNOWN INDICATION
  4. CYMBALTA [Concomitant]
     Indication: DRUG USE FOR UNKNOWN INDICATION
     Route: 048
  5. ATENOLOL [Concomitant]
     Indication: HYPERTENSION
     Route: 048
  6. PRAVASTATIN [Concomitant]
     Indication: DRUG USE FOR UNKNOWN INDICATION
     Route: 048
     Dates: start: 20091106
  7. PRAVASTATIN [Concomitant]
     Dosage: 1 TABLET X 20MG DAILY
     Route: 048
     Dates: end: 20091106
  8. TRAMADOL HYDROCHLORIDE AND ACETAMINOPHEN [Concomitant]
     Indication: PAIN
     Dosage: 1 Q4-6H; USUALLY TAKES 1 DAILY AS NEEDED
  9. COZAAR [Concomitant]
     Indication: DRUG USE FOR UNKNOWN INDICATION
     Route: 048
  10. HYDROCHLOROTHIAZIDE [Concomitant]
     Indication: DRUG USE FOR UNKNOWN INDICATION
     Route: 048
  11. ADVAIR DISKUS 100/50 [Concomitant]
     Indication: ASTHMA
     Dosage: 500/50MG INHALATION
     Route: 055
  12. FLONASE [Concomitant]
     Indication: ASTHMA
  13. FLONASE [Concomitant]
     Indication: HYPERSENSITIVITY
  14. ALBUTEROL [Concomitant]
     Indication: ASTHMA
     Route: 055
  15. ALBUTEROL [Concomitant]
     Indication: HYPERSENSITIVITY

REACTIONS (3)
  - COUGH [None]
  - LYMPHADENOPATHY [None]
  - SINUSITIS [None]
